FAERS Safety Report 19386100 (Version 1)
Quarter: 2021Q2

REPORT INFORMATION
  Report Type: Report from Study
  Country: IN (occurrence: IN)
  Receive Date: 20210608
  Receipt Date: 20210608
  Transmission Date: 20210717
  Serious: Yes (Death)
  Sender: FDA-Public Use
  Company Number: IN-PFIZER INC-2021664302

PATIENT

DRUGS (7)
  1. VINCRISTINE [Suspect]
     Active Substance: VINCRISTINE
     Indication: EWING^S SARCOMA
     Dosage: 1.5 MG/M2, CYCLIC IV PUSH ON DAY 1 (MAXIMUM DOSE OF VINCRISTINE WAS 2MG)
     Route: 042
  2. CYCLOPHOSPHAMIDE. [Suspect]
     Active Substance: CYCLOPHOSPHAMIDE
     Indication: EWING^S SARCOMA
     Dosage: 600 MG/M2, CYCLIC IV OVER 30 MINUTES ON DAY 1
     Route: 042
  3. DOXORUBICIN HCL [Suspect]
     Active Substance: DOXORUBICIN HYDROCHLORIDE
     Indication: EWING^S SARCOMA
     Dosage: 60 MG/M2, CYCLIC IV OVER 6 HOURS ON DAY 1
     Route: 042
  4. ETOPOSIDE. [Suspect]
     Active Substance: ETOPOSIDE
     Indication: EWING^S SARCOMA
     Dosage: 100 MG/M2, CYCLIC IV OVER 1?2 HOURS DAY 1 TO DAY 5
     Route: 042
  5. MESNA. [Suspect]
     Active Substance: MESNA
     Indication: EWING^S SARCOMA
     Dosage: 600 MG/M2, CYCLIC AT 0, 3, 6, AND 9  HOURS OF IFOSFAMIDE
  6. IFOSFAMIDE. [Suspect]
     Active Substance: IFOSFAMIDE
     Indication: EWING^S SARCOMA
     Dosage: 2000 MG/M2, CYCLIC 2000 MG/M2 IV INFUSION OVER 2 HOURS DAY 1 TO DAY 5
     Route: 042
  7. DACTINOMYCIN [Suspect]
     Active Substance: DACTINOMYCIN
     Indication: EWING^S SARCOMA
     Dosage: 1 MG/M2, CYCLIC IV PUSH ON DAY 1
     Route: 042

REACTIONS (1)
  - Death [Fatal]
